FAERS Safety Report 9732090 (Version 1)
Quarter: 2013Q4

REPORT INFORMATION
  Report Type: Spontaneous
  Country: US (occurrence: None)
  Receive Date: 20131204
  Receipt Date: 20131204
  Transmission Date: 20140711
  Serious: Yes (Death)
  Sender: FDA-Public Use
  Company Number: None

PATIENT
  Age: 75 Year
  Sex: Male

DRUGS (1)
  1. NEXAVER 200MG BAYER [Suspect]
     Indication: SKIN CANCER
     Route: 048
     Dates: start: 20131010, end: 20131201

REACTIONS (1)
  - Death [None]
